FAERS Safety Report 7438999-1 (Version None)
Quarter: 2011Q2

REPORT INFORMATION
  Report Type: 
  Country: None (occurrence: None)
  Receive Date: 20110427
  Receipt Date: 20110418
  Transmission Date: 20111010
  Serious: Yes (Other)
  Sender: FDA-Public Use
  Company Number: US-US-EMD SERONO, INC.-7053561

PATIENT
  Sex: Female

DRUGS (5)
  1. HYDROCHLOROTHIAZIDE [Concomitant]
  2. METOPROLOL [Concomitant]
  3. GABAPENTIN [Concomitant]
  4. REBIF [Suspect]
     Indication: MULTIPLE SCLEROSIS
     Route: 058
     Dates: start: 20100607
  5. VICODIN [Concomitant]

REACTIONS (5)
  - DIABETES MELLITUS [None]
  - FLATULENCE [None]
  - GAIT DISTURBANCE [None]
  - EYELID PTOSIS [None]
  - CONSTIPATION [None]
